FAERS Safety Report 5228616-3 (Version None)
Quarter: 2007Q1

REPORT INFORMATION
  Report Type: 
  Country: None (occurrence: None)
  Receive Date: 20070205
  Receipt Date: 20070126
  Transmission Date: 20070707
  Serious: Yes (Other)
  Sender: FDA-Public Use
  Company Number: 2007UW01739

PATIENT
  Age: 57 Year
  Sex: Female

DRUGS (1)
  1. FASLODEX [Suspect]
     Indication: BREAST CANCER
     Route: 030
     Dates: start: 20060901

REACTIONS (5)
  - ASTHENIA [None]
  - DISEASE PROGRESSION [None]
  - MALAISE [None]
  - TUMOUR MARKER INCREASED [None]
  - URINE ODOUR ABNORMAL [None]
